FAERS Safety Report 11841181 (Version 1)
Quarter: 2015Q4

REPORT INFORMATION
  Report Type: Report from Study
  Country: US (occurrence: US)
  Receive Date: 20151216
  Receipt Date: 20151216
  Transmission Date: 20160305
  Serious: Yes (Hospitalization, Other)
  Sender: FDA-Public Use
  Company Number: US-ABBVIE-15K-163-1506048-00

PATIENT
  Age: 68 Year
  Sex: Female

DRUGS (22)
  1. NEURONTIN [Concomitant]
     Active Substance: GABAPENTIN
     Indication: PRODUCT USED FOR UNKNOWN INDICATION
  2. ZYRTEC [Concomitant]
     Active Substance: CETIRIZINE HYDROCHLORIDE
     Indication: PRODUCT USED FOR UNKNOWN INDICATION
  3. ANTIVERT [Concomitant]
     Active Substance: MECLIZINE HYDROCHLORIDE
     Indication: PRODUCT USED FOR UNKNOWN INDICATION
     Dosage: ONE TO TWO TABLET DAILY AS DIRECTED
  4. CIPRO [Concomitant]
     Active Substance: CIPROFLOXACIN HYDROCHLORIDE
     Indication: PRODUCT USED FOR UNKNOWN INDICATION
     Route: 048
  5. FLAGYL [Concomitant]
     Active Substance: METRONIDAZOLE\METRONIDAZOLE HYDROCHLORIDE
     Indication: PRODUCT USED FOR UNKNOWN INDICATION
  6. OXYCODONE [Concomitant]
     Active Substance: OXYCODONE
     Indication: PRODUCT USED FOR UNKNOWN INDICATION
     Dosage: TAKE ONE TABLET 5 MG TOTAL
  7. HUMIRA [Suspect]
     Active Substance: ADALIMUMAB
     Indication: RHEUMATOID ARTHRITIS
     Dosage: KEEP REFRIGERATED
     Route: 058
     Dates: start: 20150821, end: 20151031
  8. FLONASE [Concomitant]
     Active Substance: FLUTICASONE PROPIONATE
     Indication: PRODUCT USED FOR UNKNOWN INDICATION
     Dosage: 50 MCG/ACTUATION NASAL SPRAY, ONE SPRAY IN EACH NOSTRIL
  9. PRILOSEC [Concomitant]
     Active Substance: OMEPRAZOLE MAGNESIUM
     Indication: PRODUCT USED FOR UNKNOWN INDICATION
  10. VENLAFAXINE [Concomitant]
     Active Substance: VENLAFAXINE HYDROCHLORIDE
     Indication: PRODUCT USED FOR UNKNOWN INDICATION
     Dosage: TWENTY FOUR HOUR CAPSULE
  11. PREDNISONE. [Concomitant]
     Active Substance: PREDNISONE
     Indication: PRODUCT USED FOR UNKNOWN INDICATION
  12. ZESTRIL [Concomitant]
     Active Substance: LISINOPRIL
     Indication: PRODUCT USED FOR UNKNOWN INDICATION
  13. PRAVACHOL [Concomitant]
     Active Substance: PRAVASTATIN SODIUM
     Indication: PRODUCT USED FOR UNKNOWN INDICATION
  14. METAMUCIL [Concomitant]
     Active Substance: PLANTAGO SEED
     Indication: PRODUCT USED FOR UNKNOWN INDICATION
     Dosage: PACKET
     Route: 048
  15. ACETAMINOPHEN. [Concomitant]
     Active Substance: ACETAMINOPHEN
     Indication: ARTHRITIS
     Route: 048
  16. HYDRODIURIL [Concomitant]
     Active Substance: HYDROCHLOROTHIAZIDE
     Indication: PRODUCT USED FOR UNKNOWN INDICATION
     Dosage: 30 TABLETS DISPENSED
     Route: 048
  17. SOLIFENACIN SUCCINATE. [Concomitant]
     Active Substance: SOLIFENACIN SUCCINATE
     Indication: PRODUCT USED FOR UNKNOWN INDICATION
     Route: 048
  18. ULTRAM [Concomitant]
     Active Substance: TRAMADOL HYDROCHLORIDE
     Indication: PAIN
     Dosage: ONE TABLET EVERY EIGHT HOUR AS NEEDED
     Route: 048
  19. OSCAL [Concomitant]
     Active Substance: CALCIUM CARBONATE
     Indication: PRODUCT USED FOR UNKNOWN INDICATION
     Dosage: 600 MG (1,500MG)
  20. KLONOPIN [Concomitant]
     Active Substance: CLONAZEPAM
     Indication: PRODUCT USED FOR UNKNOWN INDICATION
     Dosage: ONE TABLET THREE TIMES DAILY AS NEEDED
  21. ADALAT CC [Concomitant]
     Active Substance: NIFEDIPINE
     Indication: PRODUCT USED FOR UNKNOWN INDICATION
     Dosage: TWENTY FOUR TABLET
  22. ROXICODONE [Concomitant]
     Active Substance: OXYCODONE HYDROCHLORIDE
     Indication: PAIN
     Dosage: IMMEDIATE RELEASE TABLET AS NEEDED
     Route: 048

REACTIONS (40)
  - Intestinal dilatation [Unknown]
  - Blood glucose increased [Unknown]
  - Polyp [Unknown]
  - Computerised tomogram abdomen abnormal [Unknown]
  - Neck pain [Unknown]
  - Hypertension [Unknown]
  - Osteoarthritis [Unknown]
  - Renal disorder [Unknown]
  - Abdominal pain [Unknown]
  - White blood cell count increased [Unknown]
  - Diverticulum intestinal [Unknown]
  - Hiatus hernia [Unknown]
  - Joint effusion [Unknown]
  - Pain in extremity [Unknown]
  - Abdominal distension [Unknown]
  - Arthritis [Unknown]
  - Tuberculosis [Unknown]
  - Diverticulitis [Unknown]
  - Platelet count increased [Unknown]
  - Renal cyst [Unknown]
  - Localised intraabdominal fluid collection [Unknown]
  - Diverticulitis [Recovered/Resolved]
  - Rheumatoid arthritis [Unknown]
  - Asthenia [Unknown]
  - Influenza [Unknown]
  - Carbon dioxide decreased [Unknown]
  - Pulmonary mass [Unknown]
  - Spinal osteoarthritis [Unknown]
  - Colonic abscess [Unknown]
  - Abdominal discomfort [Unknown]
  - Fall [Unknown]
  - Hypokalaemia [Unknown]
  - Gastrointestinal disorder [Unknown]
  - Gastrointestinal wall thickening [Unknown]
  - Myalgia [Unknown]
  - Large intestine perforation [Unknown]
  - Gastrooesophageal reflux disease [Unknown]
  - Colitis [Unknown]
  - Drug eruption [Unknown]
  - Latent tuberculosis [Unknown]

NARRATIVE: CASE EVENT DATE: 2015
